FAERS Safety Report 17170086 (Version 6)
Quarter: 2021Q2

REPORT INFORMATION
  Report Type: Report from Study
  Country: US (occurrence: US)
  Receive Date: 20191218
  Receipt Date: 20210524
  Transmission Date: 20210716
  Serious: Yes (Life-Threatening, Hospitalization, Other)
  Sender: FDA-Public Use
  Company Number: NVSC2019US067190

PATIENT
  Sex: Female

DRUGS (1)
  1. OMNITROPE [Suspect]
     Active Substance: SOMATROPIN
     Indication: PRODUCT USED FOR UNKNOWN INDICATION
     Dosage: UNK
     Route: 065

REACTIONS (16)
  - Bronchitis [Unknown]
  - Dehydration [Unknown]
  - Illness [Unknown]
  - Pain [Unknown]
  - Decreased appetite [Unknown]
  - Sinusitis [Unknown]
  - Gait inability [Unknown]
  - Cholecystitis infective [Unknown]
  - Product dose omission issue [Unknown]
  - Cholelithiasis [Unknown]
  - Near death experience [Unknown]
  - Body temperature increased [Unknown]
  - Full blood count decreased [Unknown]
  - Joint injury [Unknown]
  - Pneumonia [Unknown]
  - Vomiting [Unknown]
